FAERS Safety Report 11079213 (Version 2)
Quarter: 2015Q2

REPORT INFORMATION
  Report Type: Report from Study
  Country: AU (occurrence: AU)
  Receive Date: 20150430
  Receipt Date: 20150519
  Transmission Date: 20150821
  Serious: Yes (Death, Hospitalization, Other)
  Sender: FDA-Public Use
  Company Number: AU-INCYTE CORPORATION-2015IN000894

PATIENT
  Sex: Male

DRUGS (2)
  1. JAKAFI [Suspect]
     Active Substance: RUXOLITINIB
     Indication: MYELOFIBROSIS
     Dosage: 20 MG, BID
     Route: 065
  2. JAKAFI [Suspect]
     Active Substance: RUXOLITINIB
     Dosage: UNK
     Route: 065

REACTIONS (11)
  - Liver disorder [Unknown]
  - Hepatic encephalopathy [Not Recovered/Not Resolved]
  - Blast cell crisis [Fatal]
  - Neutropenia [Fatal]
  - Stress [Unknown]
  - Malaise [Unknown]
  - Acute kidney injury [Fatal]
  - Hepatic failure [Fatal]
  - Erythroleukaemia [Fatal]
  - Hepatomegaly [Unknown]
  - Platelet count increased [Unknown]
